FAERS Safety Report 9036703 (Version 1)
Quarter: 2013Q1

REPORT INFORMATION
  Report Type: Spontaneous
  Country: FR (occurrence: None)
  Receive Date: 20130114
  Receipt Date: 20130114
  Transmission Date: 20140127
  Serious: Yes (Hospitalization)
  Sender: FDA-Public Use
  Company Number: FR-20120367

PATIENT
  Age: 80 Year
  Sex: Male

DRUGS (13)
  1. HEXABRIX 320 (IOXAGLIC ACID) UNKNOWN [Suspect]
     Indication: DEVICE MATERIAL OPACIFICATION
     Route: 042
     Dates: start: 20110405, end: 20110405
  2. OXAZEPAM [Concomitant]
  3. TRAMADOL HYDROCHLORIDE [Concomitant]
  4. DESLORATADINE [Concomitant]
  5. ZOLPIDEM [Concomitant]
  6. ESCITALOPRAM OXALATE [Concomitant]
  7. SERETIDE (FLUTICASONE PROPIONATE, SALMETEROL XINAFOATE) (FLUTICASONE PROPIONATE, SALMETEROL XINAFOATE) [Concomitant]
  8. ALBUTEROL\GUAIFENESIN [Suspect]
  9. SPIRIVA [Concomitant]
  10. NOVOMIX [Concomitant]
  11. METHYLPREDNISOLONE SODIUM SUCCINATE [Concomitant]
  12. CEFTAZIDIME [Concomitant]
  13. AMIKACIN [Concomitant]

REACTIONS (4)
  - Angioedema [None]
  - Respiratory distress [None]
  - Pneumonia [None]
  - Personality disorder [None]
